FAERS Safety Report 9752538 (Version 2)
Quarter: 2013Q4

REPORT INFORMATION
  Report Type: Report from Study
  Country: CA (occurrence: CA)
  Receive Date: 20131213
  Receipt Date: 20131220
  Transmission Date: 20140711
  Serious: Yes (Hospitalization)
  Sender: FDA-Public Use
  Company Number: CA-JNJFOC-20131204610

PATIENT
  Age: 27 Year
  Sex: Female
  Weight: 44 kg

DRUGS (11)
  1. REMICADE [Suspect]
     Indication: CROHN^S DISEASE
     Route: 042
     Dates: start: 20081216
  2. DILAUDID [Concomitant]
     Route: 065
  3. 5-AMINOSALICYLIC ACID [Concomitant]
     Route: 065
  4. METHOTREXATE [Concomitant]
     Route: 065
  5. ATIVAN [Concomitant]
     Route: 065
  6. TRAZODONE [Concomitant]
     Route: 065
  7. ZOFRAN [Concomitant]
     Route: 065
  8. GRAVOL [Concomitant]
     Route: 065
  9. VALTREX [Concomitant]
     Route: 065
  10. CIPRO [Concomitant]
     Route: 065
  11. FLAGYL [Concomitant]
     Route: 065

REACTIONS (4)
  - Haemorrhage [Unknown]
  - Dehydration [Unknown]
  - Abdominal pain [Unknown]
  - Nausea [Unknown]
